FAERS Safety Report 24350943 (Version 1)
Quarter: 2024Q3

REPORT INFORMATION
  Report Type: Report from Study
  Country: PE (occurrence: PE)
  Receive Date: 20240923
  Receipt Date: 20240923
  Transmission Date: 20241017
  Serious: No
  Sender: ROCHE
  Company Number: PE-ROCHE-3536524

PATIENT
  Age: 36 Year
  Sex: Female

DRUGS (13)
  1. HERCEPTIN [Suspect]
     Active Substance: TRASTUZUMAB
     Indication: Breast cancer
     Route: 042
     Dates: start: 20240119
  2. PERJETA [Suspect]
     Active Substance: PERTUZUMAB
     Indication: Breast cancer
     Route: 042
     Dates: start: 20240119
  3. DOCETAXEL [Concomitant]
     Active Substance: DOCETAXEL\DOCETAXEL ANHYDROUS
     Indication: Breast cancer
     Dosage: FREQUENCY WAS NOT REPORTED
     Route: 042
  4. CARBOPLATIN [Concomitant]
     Active Substance: CARBOPLATIN
     Indication: Breast cancer
     Dosage: FREQUENCY WAS NOT REPORTED
     Route: 042
  5. RANITIDINE [Concomitant]
     Active Substance: RANITIDINE
     Indication: Premedication
     Dosage: FREQUENCY TEXT:SINGLE DOSE
     Route: 042
  6. CHLORPHENIRAMINE MALEATE [Concomitant]
     Active Substance: CHLORPHENIRAMINE MALEATE
     Indication: Premedication
     Dosage: FREQUENCY TEXT:SINGLE DOSE
     Route: 042
  7. ACETAMINOPHEN [Concomitant]
     Active Substance: ACETAMINOPHEN
     Indication: Premedication
     Dosage: FREQUENCY TEXT:SINGLE DOSE
     Route: 048
  8. DEXAMETHASONE [Concomitant]
     Active Substance: DEXAMETHASONE
     Indication: Premedication
     Dosage: FREQUENCY TEXT:SINGLE DOSE
     Route: 042
  9. DEXAMETHASONE [Concomitant]
     Active Substance: DEXAMETHASONE
     Dosage: FOR 2 DAYS
     Route: 048
  10. ONDANSETRON [Concomitant]
     Active Substance: ONDANSETRON
     Indication: Premedication
     Dosage: FREQUENCY TEXT:SINGLE DOSE
     Route: 042
  11. APREPITANT [Concomitant]
     Active Substance: APREPITANT
     Indication: Premedication
     Dosage: FREQUENCY TEXT:SINGLE DOSE
     Route: 048
  12. FILGRASTIM [Concomitant]
     Active Substance: FILGRASTIM
     Dosage: FOR 5 DAYS
     Route: 058
  13. DIMENHYDRINATE [Concomitant]
     Active Substance: DIMENHYDRINATE
     Indication: Premedication
     Dosage: CONDITIONAL ON NAUSEA
     Route: 048

REACTIONS (2)
  - Intercepted product prescribing error [Unknown]
  - No adverse event [Unknown]
